FAERS Safety Report 8973301 (Version 1)
Quarter: 2012Q4

REPORT INFORMATION
  Report Type: 
  Country: US (occurrence: US)
  Receive Date: 20121218
  Receipt Date: 20121218
  Transmission Date: 20130627
  Serious: No
  Sender: FDA-Public Use
  Company Number: US-BRISTOL-MYERS SQUIBB COMPANY-16436453

PATIENT
  Age: 53 Year
  Sex: Male

DRUGS (3)
  1. ABILIFY TABS 30 MG [Suspect]
     Indication: PSYCHOTIC DISORDER
     Dosage: started 6 months ago
     Route: 048
  2. LYRICA [Suspect]
  3. ARICEPT [Suspect]

REACTIONS (1)
  - Libido increased [Recovered/Resolved]
